FAERS Safety Report 10700518 (Version 1)
Quarter: 2015Q1

REPORT INFORMATION
  Report Type: Spontaneous
  Country: IT (occurrence: None)
  Receive Date: 20150107
  Receipt Date: 20150107
  Transmission Date: 20150721
  Serious: Yes (Other)
  Sender: FDA-Public Use
  Company Number: DEP_02427_2014

PATIENT
  Sex: Male

DRUGS (1)
  1. PECFENT [Suspect]
     Active Substance: FENTANYL CITRATE
     Indication: PRODUCT USED FOR UNKNOWN INDICATION
     Dosage: 1 BOTTLE

REACTIONS (1)
  - Tachycardia [None]

NARRATIVE: CASE EVENT DATE: 20141203
